FAERS Safety Report 19750338 (Version 1)
Quarter: 2021Q3

REPORT INFORMATION
  Report Type: Spontaneous
  Country: CN (occurrence: CN)
  Receive Date: 20210826
  Receipt Date: 20210826
  Transmission Date: 20211014
  Serious: Yes (Hospitalization)
  Sender: FDA-Public Use
  Company Number: CN-ELI_LILLY_AND_COMPANY-CN202108009652

PATIENT
  Age: 73 Year
  Sex: Male
  Weight: 62 kg

DRUGS (8)
  1. GEMCITABINE HYDROCHLORIDE. [Suspect]
     Active Substance: GEMCITABINE HYDROCHLORIDE
     Indication: NASOPHARYNGEAL CANCER
     Dosage: 1.6 G, SINGLE
     Route: 041
     Dates: start: 20210513, end: 20210513
  2. GEMCITABINE HYDROCHLORIDE. [Suspect]
     Active Substance: GEMCITABINE HYDROCHLORIDE
     Dosage: 1.6 G, SINGLE
     Route: 041
     Dates: start: 20210718, end: 20210718
  3. SODIUM CHLORIDE. [Concomitant]
     Active Substance: SODIUM CHLORIDE
     Dosage: 250 ML, DAILY
     Route: 041
     Dates: start: 20210720, end: 20210720
  4. PEMBROLIZUMAB. [Suspect]
     Active Substance: PEMBROLIZUMAB
     Indication: NASOPHARYNGEAL CANCER
     Dosage: 200 MG
     Route: 048
     Dates: start: 20210513, end: 20210513
  5. CISPLATIN. [Suspect]
     Active Substance: CISPLATIN
     Dosage: 30 MG, DAILY
     Route: 041
     Dates: start: 20210720, end: 20210720
  6. PEMBROLIZUMAB. [Suspect]
     Active Substance: PEMBROLIZUMAB
     Dosage: 200 MG
     Route: 048
     Dates: start: 20210717, end: 20210717
  7. CISPLATIN. [Suspect]
     Active Substance: CISPLATIN
     Indication: NASOPHARYNGEAL CANCER
     Dosage: 30 MG, DAILY
     Route: 041
     Dates: start: 20210513, end: 20210513
  8. SODIUM CHLORIDE. [Concomitant]
     Active Substance: SODIUM CHLORIDE
     Indication: MEDICATION DILUTION
     Dosage: 100 ML, DAILY
     Route: 041
     Dates: start: 20210717, end: 20210718

REACTIONS (2)
  - Off label use [Unknown]
  - Myelosuppression [Recovering/Resolving]

NARRATIVE: CASE EVENT DATE: 20210527
